FAERS Safety Report 9323718 (Version 1)
Quarter: 2013Q2

REPORT INFORMATION
  Report Type: Spontaneous
  Country: GB (occurrence: GB)
  Receive Date: 20130603
  Receipt Date: 20130603
  Transmission Date: 20140414
  Serious: Yes (Life-Threatening, Hospitalization)
  Sender: FDA-Public Use
  Company Number: GB-JNJFOC-20130516350

PATIENT
  Age: 41 Year
  Sex: Male

DRUGS (11)
  1. PARACETAMOL [Suspect]
     Route: 065
  2. PARACETAMOL [Suspect]
     Indication: PRODUCT USED FOR UNKNOWN INDICATION
     Route: 065
     Dates: start: 20121223
  3. CLOZARIL [Suspect]
     Indication: PSYCHOTIC DISORDER
     Route: 048
     Dates: start: 20070126, end: 20121212
  4. CLOZARIL [Suspect]
     Indication: PSYCHOTIC DISORDER
     Route: 048
  5. CLOZARIL [Suspect]
     Indication: SCHIZOPHRENIA
     Route: 048
  6. CLOZARIL [Suspect]
     Indication: SCHIZOPHRENIA
     Route: 048
     Dates: start: 20070126, end: 20121212
  7. VENLAFAXINE [Concomitant]
     Route: 048
  8. RISPERIDONE [Concomitant]
     Indication: PSYCHOTIC DISORDER
     Dosage: 2 / 1DAYS
     Route: 048
  9. TOPIRAMATE [Concomitant]
     Route: 048
  10. SERETIDE [Concomitant]
     Indication: ASTHMA
     Dosage: 2 / 1DAYS
     Route: 065
  11. VENLAFAXINE [Concomitant]
     Indication: DEPRESSION
     Route: 048

REACTIONS (5)
  - Liver injury [Unknown]
  - Renal disorder [Unknown]
  - Psychotic disorder [Unknown]
  - Self injurious behaviour [Unknown]
  - Intentional overdose [Recovering/Resolving]
